FAERS Safety Report 5529143-6 (Version None)
Quarter: 2007Q4

REPORT INFORMATION
  Report Type: 
  Country: None (occurrence: None)
  Receive Date: 20071129
  Receipt Date: 20070326
  Transmission Date: 20080405
  Serious: No
  Sender: FDA-Public Use
  Company Number: A0637426A

PATIENT
  Age: 43 Year
  Sex: Female

DRUGS (4)
  1. WELLBUTRIN SR [Suspect]
     Indication: DEPRESSION
     Dosage: 50MG THREE TIMES PER DAY
     Route: 048
  2. CELEXA [Concomitant]
  3. GABITRIL [Concomitant]
  4. ANTIHISTAMINES [Concomitant]

REACTIONS (9)
  - AGITATION [None]
  - ALOPECIA [None]
  - ANXIETY [None]
  - ASTHENIA [None]
  - FUNGAL RASH [None]
  - HYPERHIDROSIS [None]
  - PAIN [None]
  - SEDATION [None]
  - SINUS DISORDER [None]
